APPROVED DRUG PRODUCT: XYLOCAINE W/ EPINEPHRINE
Active Ingredient: EPINEPHRINE; LIDOCAINE HYDROCHLORIDE
Strength: 0.005MG/ML;1.5%
Dosage Form/Route: INJECTABLE;INJECTION
Application: N010418 | Product #010
Applicant: ASTRAZENECA LP
Approved: Approved Prior to Jan 1, 1982 | RLD: No | RS: No | Type: DISCN